FAERS Safety Report 10244667 (Version 2)
Quarter: 2014Q3

REPORT INFORMATION
  Report Type: Report from Study
  Country: US (occurrence: US)
  Receive Date: 20140618
  Receipt Date: 20140710
  Transmission Date: 20150326
  Serious: Yes (Hospitalization, Other)
  Sender: FDA-Public Use
  Company Number: US-VIIV HEALTHCARE LIMITED-B1004050A

PATIENT
  Age: 64 Year
  Sex: Female
  Weight: 122.6 kg

DRUGS (20)
  1. INSULIN [Concomitant]
     Active Substance: INSULIN NOS
     Dosage: 30UNIT PER DAY
  2. PROTEIN [Concomitant]
     Active Substance: PROTEIN
     Route: 048
  3. HEPARIN [Concomitant]
     Active Substance: HEPARIN SODIUM
     Dosage: 500UNIT THREE TIMES PER DAY
     Route: 058
  4. PROTEIN [Concomitant]
     Active Substance: PROTEIN
     Dosage: 80ML TWICE PER DAY
     Route: 050
  5. BECLOMETHASONE [Concomitant]
     Active Substance: BECLOMETHASONE
     Dosage: 2MG FOUR TIMES PER DAY
  6. SIMVASTATIN. [Concomitant]
     Active Substance: SIMVASTATIN
     Dosage: 10MG PER DAY
     Route: 048
  7. TACROLIMUS. [Concomitant]
     Active Substance: TACROLIMUS
     Dosage: 2MG TWICE PER DAY
     Route: 048
  8. DAPSONE. [Concomitant]
     Active Substance: DAPSONE
     Route: 048
  9. CASPOFUNGIN [Concomitant]
     Active Substance: CASPOFUNGIN
     Dosage: 50MG PER DAY
     Route: 042
  10. ZOFRAN [Concomitant]
     Active Substance: ONDANSETRON HYDROCHLORIDE
     Dosage: 4MG AS REQUIRED
     Route: 042
  11. VICODIN [Concomitant]
     Active Substance: ACETAMINOPHEN\HYDROCODONE BITARTRATE
     Indication: PAIN
     Route: 048
  12. MARAVIROC [Suspect]
     Active Substance: MARAVIROC
     Indication: GRAFT VERSUS HOST DISEASE
     Dosage: 300MG TWICE PER DAY
     Route: 048
     Dates: start: 20140223, end: 20140527
  13. RANITIDINE [Concomitant]
     Active Substance: RANITIDINE\RANITIDINE HYDROCHLORIDE
     Dosage: 150MG TWICE PER DAY
  14. ATROVENT [Concomitant]
     Active Substance: IPRATROPIUM BROMIDE
  15. LISINOPRIL. [Concomitant]
     Active Substance: LISINOPRIL
     Dosage: 20MG PER DAY
     Route: 048
  16. ACYCLOVIR. [Concomitant]
     Active Substance: ACYCLOVIR
     Dosage: 800MG TWICE PER DAY
     Route: 048
  17. ALBUTEROL. [Concomitant]
     Active Substance: ALBUTEROL
  18. MG OXIDE [Concomitant]
     Dosage: 400MG PER DAY
     Route: 048
  19. ZOLOFT [Concomitant]
     Active Substance: SERTRALINE HYDROCHLORIDE
     Dosage: 25MG PER DAY
     Route: 048
  20. METOPROLOL [Concomitant]
     Active Substance: METOPROLOL
     Dosage: 25MG TWICE PER DAY
     Route: 048

REACTIONS (2)
  - Sepsis [Not Recovered/Not Resolved]
  - Hepatic cancer [Not Recovered/Not Resolved]

NARRATIVE: CASE EVENT DATE: 20140603
